FAERS Safety Report 17110670 (Version 2)
Quarter: 2020Q2

REPORT INFORMATION
  Report Type: Spontaneous
  Country: US (occurrence: US)
  Receive Date: 20191204
  Receipt Date: 20200413
  Transmission Date: 20200713
  Serious: No
  Sender: FDA-Public Use
  Company Number: US-PFIZER INC-2019523899

PATIENT
  Age: 78 Year
  Sex: Female
  Weight: 67.13 kg

DRUGS (1)
  1. PREGABALIN. [Suspect]
     Active Substance: PREGABALIN
     Dosage: UNK

REACTIONS (4)
  - Malaise [Unknown]
  - Pain [Unknown]
  - Drug ineffective [Unknown]
  - Gait disturbance [Unknown]
